FAERS Safety Report 14240230 (Version 1)
Quarter: 2017Q4

REPORT INFORMATION
  Report Type: Spontaneous
  Country: US (occurrence: US)
  Receive Date: 20171129
  Receipt Date: 20171129
  Transmission Date: 20180321
  Serious: No
  Sender: FDA-Public Use
  Company Number: None

PATIENT
  Age: 53 Year
  Sex: Male
  Weight: 84 kg

DRUGS (23)
  1. TACROLIMUS. [Concomitant]
     Active Substance: TACROLIMUS
  2. BACTRIM [Concomitant]
     Active Substance: SULFAMETHOXAZOLE\TRIMETHOPRIM
  3. AZACITIDINE. [Suspect]
     Active Substance: AZACITIDINE
     Indication: ACUTE MYELOID LEUKAEMIA
     Dosage: OTHER FREQUENCY:DAY 1 TO DAY 5;?
     Dates: start: 20170713
  4. TRAMADOL. [Concomitant]
     Active Substance: TRAMADOL
  5. ENOXAPARIN [Concomitant]
     Active Substance: ENOXAPARIN
  6. METOPROLOL SUCCINATE. [Concomitant]
     Active Substance: METOPROLOL SUCCINATE
  7. PROCHLORPERAZINE. [Concomitant]
     Active Substance: PROCHLORPERAZINE
  8. TRIAMCINOLONE ACETONIDE. [Concomitant]
     Active Substance: TRIAMCINOLONE ACETONIDE
  9. MULTIPLE VITAMIN [Concomitant]
     Active Substance: VITAMINS
  10. PSYLLIUM [Concomitant]
     Active Substance: PLANTAGO SEED
  11. FOLIC ACID. [Concomitant]
     Active Substance: FOLIC ACID
  12. METFORMIN [Concomitant]
     Active Substance: METFORMIN HYDROCHLORIDE
  13. MEDROL [Concomitant]
     Active Substance: METHYLPREDNISOLONE
  14. VALPROIC ACID. [Suspect]
     Active Substance: VALPROIC ACID
     Route: 048
     Dates: start: 20170713
  15. MIRTAZAPINE. [Concomitant]
     Active Substance: MIRTAZAPINE
  16. PANTOPRAZOLE [Concomitant]
     Active Substance: PANTOPRAZOLE
  17. AUGMENTIN [Concomitant]
     Active Substance: AMOXICILLIN\CLAVULANATE POTASSIUM
  18. NORCO [Concomitant]
     Active Substance: ACETAMINOPHEN\HYDROCODONE BITARTRATE
  19. ADVAIR HFA [Concomitant]
     Active Substance: FLUTICASONE PROPIONATE\SALMETEROL XINAFOATE
  20. ACYCLOVIR. [Concomitant]
     Active Substance: ACYCLOVIR
  21. FLUCONAZOLE. [Concomitant]
     Active Substance: FLUCONAZOLE
  22. GABAPENTIN. [Concomitant]
     Active Substance: GABAPENTIN
  23. HYDROCORTISONE. [Concomitant]
     Active Substance: HYDROCORTISONE

REACTIONS (1)
  - Deep vein thrombosis [None]

NARRATIVE: CASE EVENT DATE: 20170802
